FAERS Safety Report 5622532-0 (Version None)
Quarter: 2008Q1

REPORT INFORMATION
  Report Type: 
  Country: None (occurrence: None)
  Receive Date: 20080211
  Receipt Date: 20080201
  Transmission Date: 20080703
  Serious: Yes (Other)
  Sender: FDA-Public Use
  Company Number: BR-PFIZER INC-2008011205

PATIENT
  Sex: Female
  Weight: 76 kg

DRUGS (3)
  1. DEPO-PROVERA SUSPENSION/INJ [Suspect]
     Indication: CONTRACEPTION
     Dates: start: 20080122, end: 20080122
  2. DEPO-PROVERA SUSPENSION/INJ [Suspect]
     Indication: MENSTRUAL DISCOMFORT
  3. CRESTOR [Concomitant]
     Indication: BLOOD TRIGLYCERIDES ABNORMAL
     Route: 048

REACTIONS (1)
  - BLOOD PRESSURE INCREASED [None]
